FAERS Safety Report 11584985 (Version 4)
Quarter: 2015Q4

REPORT INFORMATION
  Report Type: Spontaneous
  Country: JP (occurrence: JP)
  Receive Date: 20151001
  Receipt Date: 20151224
  Transmission Date: 20160304
  Serious: Yes (Death, Other)
  Sender: FDA-Public Use
  Company Number: JP-PFIZER INC-2015328245

PATIENT
  Age: 76 Year
  Sex: Male

DRUGS (8)
  1. SOLYUGEN F [Concomitant]
     Dosage: 500 ML, DAILY
     Route: 041
     Dates: start: 20150915, end: 20150915
  2. MORPHINE HCL [Concomitant]
     Active Substance: MORPHINE HYDROCHLORIDE
     Dosage: 20 MG, DAILY
     Route: 058
     Dates: start: 20150915
  3. RISPERIDONE. [Concomitant]
     Active Substance: RISPERIDONE
     Dosage: 0.5 MG, DAILY
     Route: 048
     Dates: start: 20150915
  4. OMEPRAZOLE. [Concomitant]
     Active Substance: OMEPRAZOLE
     Dosage: 40 MG, DAILY
     Route: 041
     Dates: start: 20150916
  5. SERENACE [Concomitant]
     Active Substance: HALOPERIDOL
     Dosage: 5 MG, DAILY
     Route: 041
     Dates: start: 20150916
  6. KN 1A [Concomitant]
     Dosage: 1000 ML, DAILY
     Route: 041
     Dates: start: 20150916, end: 20150916
  7. ZOSYN [Suspect]
     Active Substance: PIPERACILLIN SODIUM\TAZOBACTAM SODIUM
     Indication: PNEUMONIA
     Dosage: 4.5 G, 4X/DAY
     Route: 041
     Dates: start: 20150916, end: 20151001
  8. FENTOS [Concomitant]
     Active Substance: FENTANYL
     Dosage: 2 MG, DAILY
     Dates: start: 20150914, end: 20150915

REACTIONS (3)
  - Metastases to central nervous system [Fatal]
  - Muscle rigidity [Not Recovered/Not Resolved]
  - Small cell lung cancer metastatic [Fatal]

NARRATIVE: CASE EVENT DATE: 20150917
